FAERS Safety Report 13403719 (Version 3)
Quarter: 2017Q2

REPORT INFORMATION
  Report Type: Report from Study
  Country: CA (occurrence: CA)
  Receive Date: 20170405
  Receipt Date: 20170414
  Transmission Date: 20170830
  Serious: Yes (Death, Hospitalization)
  Sender: FDA-Public Use
  Company Number: PHHY2017CA046021

PATIENT
  Age: 62 Year
  Sex: Female

DRUGS (3)
  1. COSENTYX [Suspect]
     Active Substance: SECUKINUMAB
     Indication: PSORIASIS
     Dosage: 300 MG, QW
     Route: 058
     Dates: start: 20161108, end: 20161129
  2. COSENTYX [Suspect]
     Active Substance: SECUKINUMAB
     Dosage: 300 MG, QMO
     Route: 058
     Dates: start: 20161206
  3. COSENTYX [Suspect]
     Active Substance: SECUKINUMAB
     Dosage: 300 MG, QMO
     Route: 058
     Dates: start: 20170306

REACTIONS (7)
  - Dysuria [Fatal]
  - Cardiac failure chronic [Fatal]
  - Dyspnoea [Fatal]
  - Blood potassium increased [Fatal]
  - Pneumonia [Fatal]
  - Pleural effusion [Fatal]
  - Renal failure [Fatal]

NARRATIVE: CASE EVENT DATE: 20170313
